FAERS Safety Report 5011864-5 (Version None)
Quarter: 2006Q2

REPORT INFORMATION
  Report Type: 
  Country: None (occurrence: None)
  Receive Date: 20060526
  Receipt Date: 20060516
  Transmission Date: 20061013
  Serious: Yes (Hospitalization)
  Sender: FDA-Public Use
  Company Number: ES-AVENTIS-200615325GDDC

PATIENT
  Age: 58 Year
  Sex: Male

DRUGS (6)
  1. LANTUS [Suspect]
     Indication: DIABETES MELLITUS INSULIN-DEPENDENT
     Route: 058
  2. LOSARTAN POTASSIUM [Concomitant]
  3. TORSEMIDE [Concomitant]
  4. CLOPIDOGREL BISULFATE [Concomitant]
  5. ALLOPURINOL [Concomitant]
  6. NOVORAPID [Concomitant]
     Dosage: FREQUENCY: BEFORE MEALS; DOSE UNIT: UNITS

REACTIONS (15)
  - ATRIAL FIBRILLATION [None]
  - DEHYDRATION [None]
  - DEVICE FAILURE [None]
  - DIABETIC KETOACIDOSIS [None]
  - HAEMATOCRIT DECREASED [None]
  - HAEMOGLOBIN DECREASED [None]
  - HYPOGLYCAEMIA [None]
  - HYPOTENSION [None]
  - PYREXIA [None]
  - RED BLOOD CELL COUNT DECREASED [None]
  - RENAL FAILURE ACUTE [None]
  - RHABDOMYOLYSIS [None]
  - TACHYCARDIA [None]
  - VENTRICULAR HYPERTROPHY [None]
  - WRONG TECHNIQUE IN DRUG USAGE PROCESS [None]
